FAERS Safety Report 20761914 (Version 4)
Quarter: 2022Q3

REPORT INFORMATION
  Report Type: Spontaneous
  Country: GB (occurrence: GB)
  Receive Date: 20220428
  Receipt Date: 20220718
  Transmission Date: 20221027
  Serious: Yes (Life-Threatening, Hospitalization, Other)
  Sender: FDA-Public Use
  Company Number: GB-BRISTOL-MYERS SQUIBB COMPANY-2022-019446

PATIENT
  Age: 75 Year
  Sex: Female
  Weight: 71.4 kg

DRUGS (8)
  1. LETROZOLE [Suspect]
     Active Substance: LETROZOLE
     Indication: Breast cancer
     Dosage: 2.5 MILLIGRAM, QD
     Route: 048
     Dates: start: 20220224
  2. APIXABAN [Suspect]
     Active Substance: APIXABAN
     Indication: Anticoagulant therapy
     Dosage: 5 MILLIGRAM, QD
     Route: 048
     Dates: start: 20201127, end: 20220307
  3. APIXABAN [Suspect]
     Active Substance: APIXABAN
     Indication: Cerebrovascular accident prophylaxis
     Dosage: UNK
     Route: 065
  4. APIXABAN [Suspect]
     Active Substance: APIXABAN
     Indication: Pulmonary embolism
  5. PALBOCICLIB [Suspect]
     Active Substance: PALBOCICLIB
     Indication: Breast cancer
     Dosage: 100 MILLIGRAM, QD, (ONCE DAILY, 3WEEKS ON AND 1 WEEK OFF EVERY 28 DAYS CYCLE)
     Route: 048
     Dates: start: 20220224, end: 20220301
  6. CALCIUM CARBONATE\CHOLECALCIFEROL [Concomitant]
     Active Substance: CALCIUM CARBONATE\CHOLECALCIFEROL
     Indication: Mineral supplementation
     Dosage: 1 DOSAGE FORM, BID (1 TAB TWICE A DAY/ 1500 MG /400 UNIT CHEWABLE TABLET)
     Route: 065
  7. CALCIUM CARBONATE\CHOLECALCIFEROL [Concomitant]
     Active Substance: CALCIUM CARBONATE\CHOLECALCIFEROL
     Dosage: UNK(1500/400 UNIT)
     Route: 048
  8. FEMARA [Concomitant]
     Active Substance: LETROZOLE
     Indication: Prophylaxis
     Dosage: 2.5 MILLIGRAM, QD
     Route: 048

REACTIONS (13)
  - Haematemesis [Recovered/Resolved]
  - Abdominal pain upper [Recovered/Resolved]
  - Oesophageal candidiasis [Unknown]
  - Metastases to bone [Unknown]
  - Pathological fracture [Unknown]
  - Oesophagitis [Unknown]
  - Hiatus hernia [Unknown]
  - Atelectasis [Unknown]
  - Pleural effusion [Unknown]
  - Diverticulum intestinal [Unknown]
  - Renal cyst [Unknown]
  - Infected cyst [Unknown]
  - Cyst [Unknown]

NARRATIVE: CASE EVENT DATE: 20220301
